FAERS Safety Report 22029417 (Version 1)
Quarter: 2023Q1

REPORT INFORMATION
  Report Type: Spontaneous
  Country: US (occurrence: US)
  Receive Date: 20230223
  Receipt Date: 20230223
  Transmission Date: 20230418
  Serious: No
  Sender: FDA-Public Use
  Company Number: US-JNJFOC-20230215715

PATIENT
  Age: 89 Year
  Sex: Female

DRUGS (2)
  1. WOMENS ROGAINE UNSCENTED [Suspect]
     Active Substance: MINOXIDIL
     Indication: Alopecia
     Dosage: DOSE: TEASPOON TO A TABLESPOON?FREQUENCY-ONCE A DAY FOR THE FIRST THREE DAYS. AND IT WAS TWICE A DAY
     Route: 061
     Dates: start: 202301
  2. WOMENS ROGAINE UNSCENTED [Suspect]
     Active Substance: MINOXIDIL
     Dosage: DOSE: TEASPOON TO A TABLESPOON?FREQUENCY-ONCE A DAY FOR THE FIRST THREE DAYS. AND IT WAS TWICE A DAY
     Route: 061
     Dates: start: 202302

REACTIONS (6)
  - Madarosis [Recovering/Resolving]
  - Scab [Recovering/Resolving]
  - Erythema [Recovering/Resolving]
  - Dry skin [Recovering/Resolving]
  - Incorrect dose administered [Unknown]
  - Inappropriate schedule of product administration [Unknown]

NARRATIVE: CASE EVENT DATE: 20230101
